FAERS Safety Report 21967847 (Version 1)
Quarter: 2023Q1

REPORT INFORMATION
  Report Type: Spontaneous
  Country: IT (occurrence: IT)
  Receive Date: 20230208
  Receipt Date: 20230208
  Transmission Date: 20230418
  Serious: Yes (Other)
  Sender: FDA-Public Use
  Company Number: IT-MLMSERVICE-20221223-3992818-1

PATIENT
  Age: 31 Year
  Sex: Female

DRUGS (4)
  1. DOXORUBICIN [Suspect]
     Active Substance: DOXORUBICIN
     Indication: Hodgkin^s disease
     Dosage: UNK
     Route: 042
  2. BLEOMYCIN [Suspect]
     Active Substance: BLEOMYCIN SULFATE
     Indication: Hodgkin^s disease
     Dosage: INJECTION
     Route: 042
  3. DACARBAZINE [Suspect]
     Active Substance: DACARBAZINE
     Indication: Hodgkin^s disease
     Dosage: INJECTION
     Route: 042
  4. VINBLASTINE SULFATE [Suspect]
     Active Substance: VINBLASTINE SULFATE
     Indication: Hodgkin^s disease
     Dosage: UNK
     Route: 042

REACTIONS (11)
  - Infusion site joint movement impairment [Unknown]
  - Infusion site oedema [Unknown]
  - Infusion site pain [Unknown]
  - Grip strength decreased [Unknown]
  - Infusion site hypoaesthesia [Unknown]
  - Infusion site scar [Unknown]
  - Drug monitoring procedure incorrectly performed [Unknown]
  - Infusion site ulcer [Unknown]
  - Infusion site erythema [Unknown]
  - Infusion site necrosis [Unknown]
  - Infusion site extravasation [Unknown]
